FAERS Safety Report 7114927-3 (Version None)
Quarter: 2010Q4

REPORT INFORMATION
  Report Type: 
  Country: None (occurrence: None)
  Receive Date: 20101122
  Receipt Date: 20101111
  Transmission Date: 20110411
  Serious: No
  Sender: FDA-Public Use
  Company Number: US-BIOGENIDEC-2010BI040212

PATIENT
  Age: 43 Year
  Sex: Male

DRUGS (1)
  1. TYSABRI [Suspect]
     Indication: MULTIPLE SCLEROSIS
     Route: 042
     Dates: start: 20070111

REACTIONS (6)
  - BURSITIS [None]
  - INFECTION [None]
  - JOINT SWELLING [None]
  - SKIN ULCER [None]
  - STAPHYLOCOCCAL OSTEOMYELITIS [None]
  - WOUND COMPLICATION [None]
